FAERS Safety Report 16387689 (Version 2)
Quarter: 2022Q2

REPORT INFORMATION
  Report Type: Spontaneous
  Country: CA (occurrence: CA)
  Receive Date: 20190604
  Receipt Date: 20220505
  Transmission Date: 20220720
  Serious: Yes (Hospitalization, Other)
  Sender: FDA-Public Use
  Company Number: CA-AUROBINDO-AUR-APL-2019-029807

PATIENT
  Age: 70 Year
  Sex: Female

DRUGS (12)
  1. CLOZAPINE [Suspect]
     Active Substance: CLOZAPINE
     Indication: Parkinson^s disease
     Dosage: 37.5 MILLIGRAM, ONCE A DAY
     Route: 065
  2. CLOZAPINE [Suspect]
     Active Substance: CLOZAPINE
     Indication: Psychotic disorder
  3. ENTACAPONE [Suspect]
     Active Substance: ENTACAPONE
     Indication: Parkinson^s disease
     Dosage: 1000 MILLIGRAM, ONCE A DAY
     Route: 065
  4. PRAMIPEXOLE [Suspect]
     Active Substance: PRAMIPEXOLE
     Indication: Parkinson^s disease
     Dosage: 4.5 MILLIGRAM, ONCE A DAY
     Route: 065
  5. QUETIAPINE [Suspect]
     Active Substance: QUETIAPINE
     Indication: Psychotic disorder
     Dosage: 12.5 MILLIGRAM, ONCE A DAY
     Route: 065
  6. AMANTADINE [Suspect]
     Active Substance: AMANTADINE
     Indication: Parkinson^s disease
     Dosage: 300 MILLIGRAM, ONCE A DAY
     Route: 065
  7. AMANTADINE [Suspect]
     Active Substance: AMANTADINE
     Indication: Psychotic disorder
  8. CARBIDOPA\LEVODOPA [Suspect]
     Active Substance: CARBIDOPA\LEVODOPA
     Indication: Parkinson^s disease
     Dosage: UNK
     Route: 065
  9. FLUDROCORTISONE [Suspect]
     Active Substance: FLUDROCORTISONE
     Indication: Psychotic disorder
     Dosage: 0.1 MILLIGRAM, ONCE A DAY
     Route: 065
  10. MIRAPEX [Suspect]
     Active Substance: PRAMIPEXOLE DIHYDROCHLORIDE
     Indication: Parkinson^s disease
     Dosage: 4.5 MILLIGRAM, ONCE A DAY
     Route: 065
  11. NABILONE [Suspect]
     Active Substance: NABILONE
     Indication: Parkinson^s disease
     Dosage: 1 MILLIGRAM, ONCE A DAY
     Route: 048
  12. NABILONE [Suspect]
     Active Substance: NABILONE
     Dosage: 1 MILLIGRAM
     Route: 048

REACTIONS (5)
  - Psychotic disorder [Recovering/Resolving]
  - Dystonia [Recovering/Resolving]
  - Orthostatic hypotension [Recovering/Resolving]
  - Therapeutic product effect incomplete [Recovering/Resolving]
  - Therapeutic response shortened [Recovering/Resolving]
